FAERS Safety Report 25151201 (Version 1)
Quarter: 2025Q2

REPORT INFORMATION
  Report Type: Report from Study
  Country: US (occurrence: US)
  Receive Date: 20250402
  Receipt Date: 20250402
  Transmission Date: 20250716
  Serious: Yes (Other)
  Sender: ROCHE
  Company Number: US-ROCHE-10000239867

PATIENT
  Age: 90 Year
  Sex: Female
  Weight: 66.68 kg

DRUGS (3)
  1. AVASTIN [Suspect]
     Active Substance: BEVACIZUMAB
     Indication: Dry age-related macular degeneration
     Route: 050
     Dates: start: 20180513, end: 2022
  2. VABYSMO [Suspect]
     Active Substance: FARICIMAB-SVOA
     Indication: Dry age-related macular degeneration
     Route: 050
     Dates: start: 20240202
  3. EYLEA [Concomitant]
     Active Substance: AFLIBERCEPT
     Indication: Dry age-related macular degeneration
     Dates: end: 20240202

REACTIONS (8)
  - Off label use [Unknown]
  - Thalamic stroke [Recovered/Resolved]
  - Dementia [Not Recovered/Not Resolved]
  - Ischaemia [Not Recovered/Not Resolved]
  - Hypertension [Unknown]
  - Diabetes mellitus [Not Recovered/Not Resolved]
  - Staphylococcal bacteraemia [Recovered/Resolved]
  - Wound [Recovered/Resolved]

NARRATIVE: CASE EVENT DATE: 20240830
